FAERS Safety Report 20555022 (Version 3)
Quarter: 2022Q3

REPORT INFORMATION
  Report Type: Spontaneous
  Country: FR (occurrence: FR)
  Receive Date: 20220304
  Receipt Date: 20220720
  Transmission Date: 20221027
  Serious: Yes (Other)
  Sender: FDA-Public Use
  Company Number: FR-009507513-2203FRA001566

PATIENT
  Sex: Female

DRUGS (2)
  1. APREPITANT [Interacting]
     Active Substance: APREPITANT
     Dosage: 80 MILLIGRAM DAILY
     Route: 048
  2. OLAPARIB [Interacting]
     Active Substance: OLAPARIB
     Indication: Ovarian cancer
     Dosage: UNK
     Route: 048

REACTIONS (2)
  - Toxicity to various agents [Unknown]
  - Drug interaction [Unknown]
